FAERS Safety Report 23819429 (Version 1)
Quarter: 2024Q2

REPORT INFORMATION
  Report Type: Spontaneous
  Country: US (occurrence: US)
  Receive Date: 20240506
  Receipt Date: 20240506
  Transmission Date: 20240716
  Serious: Yes (Hospitalization)
  Sender: FDA-Public Use
  Company Number: US-STRIDES ARCOLAB LIMITED-2024SP005261

PATIENT
  Age: 86 Year
  Sex: Male

DRUGS (3)
  1. MEMANTINE HYDROCHLORIDE [Suspect]
     Active Substance: MEMANTINE HYDROCHLORIDE
     Indication: Product used for unknown indication
     Dosage: 5 MILLIGRAM, BID (STARTED 1 MONTH PRIOR TO THIS PRESENTATION)
     Route: 065
  2. METOPROLOL SUCCINATE [Concomitant]
     Active Substance: METOPROLOL SUCCINATE
     Indication: Product used for unknown indication
     Dosage: 50 MILLIGRAM, QD
     Route: 065
  3. MECLIZINE [Concomitant]
     Active Substance: MECLIZINE HYDROCHLORIDE
     Indication: Dizziness
     Dosage: 12.5 MILLIGRAM, EVERY 8 HOURS (AS NEEDED)
     Route: 065

REACTIONS (7)
  - Mental status changes [Recovered/Resolved]
  - Hallucination, auditory [Recovered/Resolved]
  - Echolalia [Recovered/Resolved]
  - Agitation [Recovered/Resolved]
  - Hypertensive crisis [Recovered/Resolved]
  - Somnolence [Recovered/Resolved]
  - Accidental overdose [Unknown]
